FAERS Safety Report 8580886-X (Version None)
Quarter: 2012Q3

REPORT INFORMATION
  Report Type: 
  Country: None (occurrence: None)
  Receive Date: 20120809
  Receipt Date: 20120802
  Transmission Date: 20120928
  Serious: Yes (Other)
  Sender: FDA-Public Use
  Company Number: US-TEVA-352296USA

PATIENT
  Sex: Female
  Weight: 84.35 kg

DRUGS (8)
  1. SYMLIN [Concomitant]
     Dates: start: 20080101
  2. FEXOFENADINE [Suspect]
     Indication: SEASONAL ALLERGY
     Dosage: 180 MILLIGRAM DAILY;
     Route: 048
     Dates: start: 20120624, end: 20120727
  3. LANTUS [Concomitant]
     Dates: start: 20070101
  4. METHYLPHENIDATE HCL [Concomitant]
     Dates: start: 20111201
  5. MULTI-VITAMIN [Concomitant]
     Dates: start: 20020101
  6. INSULIN [Concomitant]
     Dates: start: 20070101
  7. BUPROPION HCL [Concomitant]
     Dates: start: 20111201
  8. CITALOPRAM HYDROBROMIDE [Concomitant]
     Dates: start: 20111101

REACTIONS (7)
  - BLOOD GLUCOSE INCREASED [None]
  - MEMORY IMPAIRMENT [None]
  - FATIGUE [None]
  - DISTURBANCE IN ATTENTION [None]
  - APATHY [None]
  - LISTLESS [None]
  - CONFUSIONAL STATE [None]
